FAERS Safety Report 10043477 (Version 1)
Quarter: 2014Q1

REPORT INFORMATION
  Report Type: Spontaneous
  Country: BR (occurrence: BR)
  Receive Date: 20140328
  Receipt Date: 20140328
  Transmission Date: 20141002
  Serious: Yes (Other)
  Sender: FDA-Public Use
  Company Number: BR-BAYER-2014-042896

PATIENT
  Sex: 0

DRUGS (1)
  1. AVALOX [Suspect]
     Indication: EYE INFECTION
     Route: 048

REACTIONS (5)
  - Iris atrophy [Recovered/Resolved with Sequelae]
  - Photophobia [Recovered/Resolved with Sequelae]
  - Pupillary deformity [Recovered/Resolved with Sequelae]
  - General physical health deterioration [None]
  - Visual impairment [None]
